FAERS Safety Report 8918270 (Version 2)
Quarter: 2013Q1

REPORT INFORMATION
  Report Type: Spontaneous
  Country: US (occurrence: US)
  Receive Date: 20121120
  Receipt Date: 20130321
  Transmission Date: 20140127
  Serious: No
  Sender: FDA-Public Use
  Company Number: US-ASTRAZENECA-2012SE25212

PATIENT
  Age: 70 Year
  Sex: Female

DRUGS (2)
  1. NEXIUM [Suspect]
     Route: 048
  2. CLONAZEPAM [Suspect]
     Route: 065

REACTIONS (3)
  - Adverse drug reaction [Unknown]
  - Anxiety [Unknown]
  - Abdominal distension [Unknown]
